FAERS Safety Report 8848477 (Version 1)
Quarter: 2012Q4

REPORT INFORMATION
  Report Type: 
  Country: US (occurrence: US)
  Receive Date: 20121019
  Receipt Date: 20121019
  Transmission Date: 20130627
  Serious: Yes (Other)
  Sender: FDA-Public Use
  Company Number: US-009507513-1210USA007598

PATIENT
  Sex: Female
  Weight: 81.63 kg

DRUGS (9)
  1. COZAAR [Suspect]
     Dosage: 50 mg, qd
  2. NEXIUM [Suspect]
     Dosage: 4 mg, qd
  3. FENTANYL [Suspect]
     Indication: FIBROMYALGIA
     Dosage: Patch 100 mcg/hr 2 patches Q3D
     Route: 062
     Dates: start: 2011
  4. FENTANYL [Suspect]
     Indication: PAIN
  5. GABAPENTIN [Suspect]
     Dosage: 600 mg, q8h
  6. ELAVIL [Suspect]
     Dosage: 100 mg, hs
  7. ZANAFLEX [Suspect]
     Dosage: 4 mg, tid
  8. MORPHINE [Suspect]
     Dosage: 150 mg, qd
  9. PERCOCET [Suspect]
     Dosage: 2 DF, qd

REACTIONS (6)
  - Rheumatoid arthritis [Unknown]
  - Product adhesion issue [Unknown]
  - Drug ineffective [Unknown]
  - Lyme disease [Recovering/Resolving]
  - Memory impairment [Recovering/Resolving]
  - Pain [Recovering/Resolving]
